FAERS Safety Report 5982534-1 (Version None)
Quarter: 2008Q4

REPORT INFORMATION
  Report Type: 
  Country: None (occurrence: None)
  Receive Date: 20081205
  Receipt Date: 20081205
  Transmission Date: 20090506
  Serious: No
  Sender: FDA-Public Use
  Company Number: None

PATIENT

DRUGS (1)
  1. ISOSORBIDE MONONITRATE [Suspect]
     Dates: start: 20050715

REACTIONS (6)
  - ARTHRITIS [None]
  - DIZZINESS [None]
  - FEELING ABNORMAL [None]
  - POOR QUALITY DRUG ADMINISTERED [None]
  - PRODUCT QUALITY ISSUE [None]
  - VISUAL IMPAIRMENT [None]
